FAERS Safety Report 7563418-4 (Version None)
Quarter: 2011Q2

REPORT INFORMATION
  Report Type: 
  Country: None (occurrence: None)
  Receive Date: 20110622
  Receipt Date: 20110520
  Transmission Date: 20111010
  Serious: Yes (Hospitalization)
  Sender: FDA-Public Use
  Company Number: B0722017A

PATIENT
  Sex: Female
  Weight: 55 kg

DRUGS (4)
  1. PACLITAXEL [Suspect]
     Indication: BREAST CANCER METASTATIC
     Dosage: 90MGM2 WEEKLY
     Route: 042
     Dates: start: 20101207
  2. PANTAZOL [Concomitant]
     Indication: PROPHYLAXIS
     Dates: start: 20101207
  3. LAPATINIB [Suspect]
     Indication: BREAST CANCER METASTATIC
     Dosage: 1000MG PER DAY
     Route: 048
     Dates: start: 20101207
  4. BISOPROLOL FUMARATE [Concomitant]
     Indication: HYPERTENSION
     Dates: start: 20091201

REACTIONS (2)
  - ANAEMIA [None]
  - DIARRHOEA [None]
